FAERS Safety Report 25299931 (Version 5)
Quarter: 2025Q4

REPORT INFORMATION
  Report Type: Report from Study
  Country: US (occurrence: US)
  Receive Date: 20250512
  Receipt Date: 20251026
  Transmission Date: 20260118
  Serious: No
  Sender: TRAVERE THERAPEUTICS
  Company Number: US-TRAVERE-2025TVT00536

PATIENT
  Age: 57 Year
  Sex: Female

DRUGS (12)
  1. FILSPARI [Suspect]
     Active Substance: SPARSENTAN
     Indication: IgA nephropathy
     Route: 048
     Dates: start: 202501
  2. FILSPARI [Suspect]
     Active Substance: SPARSENTAN
     Route: 048
     Dates: start: 20250210
  3. LOSARTAN [Concomitant]
     Active Substance: LOSARTAN
  4. FARXIGA [Concomitant]
     Active Substance: DAPAGLIFLOZIN PROPANEDIOL
  5. OZEMPIC [Concomitant]
     Active Substance: SEMAGLUTIDE
  6. FLEXERIL [Concomitant]
     Active Substance: CYCLOBENZAPRINE HYDROCHLORIDE
  7. LASIX [Concomitant]
     Active Substance: FUROSEMIDE
  8. ZOFRAN [Concomitant]
     Active Substance: ONDANSETRON HYDROCHLORIDE
  9. CRESTOR [Concomitant]
     Active Substance: ROSUVASTATIN CALCIUM
  10. BENZONATATE [Concomitant]
     Active Substance: BENZONATATE
  11. GALCANEZUMAB-GNLM [Concomitant]
     Active Substance: GALCANEZUMAB-GNLM
  12. HYDRALAZINE [Concomitant]
     Active Substance: HYDRALAZINE HYDROCHLORIDE

REACTIONS (17)
  - Blood potassium increased [None]
  - Blood sodium increased [Unknown]
  - Vomiting [Recovered/Resolved]
  - Nausea [Recovered/Resolved]
  - Influenza [Unknown]
  - Respiratory tract congestion [Unknown]
  - Ear infection [Unknown]
  - Urinary tract infection [Recovered/Resolved]
  - Bladder spasm [Recovered/Resolved]
  - Hypoacusis [Unknown]
  - Myringotomy [Unknown]
  - Malaise [Unknown]
  - Renal pain [Unknown]
  - Chromaturia [Unknown]
  - Illness [Unknown]
  - Contraindicated product administered [Unknown]
  - Blood pressure increased [Unknown]

NARRATIVE: CASE EVENT DATE: 20250305
